FAERS Safety Report 6083037-9 (Version None)
Quarter: 2009Q1

REPORT INFORMATION
  Report Type: 
  Country: None (occurrence: None)
  Receive Date: 20090218
  Receipt Date: 20090211
  Transmission Date: 20090719
  Serious: Yes (Death)
  Sender: FDA-Public Use
  Company Number: US-GILEAD-2009-0020275

PATIENT
  Sex: Male
  Weight: 65.376 kg

DRUGS (10)
  1. LETAIRIS [Suspect]
     Indication: PULMONARY ARTERIAL HYPERTENSION
     Dates: start: 20070801, end: 20081101
  2. REVATIO [Concomitant]
  3. REMODULIN [Concomitant]
  4. SYNTHROID [Concomitant]
  5. PREDNISONE [Concomitant]
  6. MIDODRINE [Concomitant]
  7. PRAVASTATIN [Concomitant]
  8. PREVACID [Concomitant]
  9. DIGOXIN [Concomitant]
  10. BUMEX [Concomitant]

REACTIONS (1)
  - ANAEMIA [None]
